FAERS Safety Report 21676445 (Version 5)
Quarter: 2023Q4

REPORT INFORMATION
  Report Type: Report from Study
  Country: US (occurrence: US)
  Receive Date: 20221202
  Receipt Date: 20231117
  Transmission Date: 20240109
  Serious: Yes (Hospitalization)
  Sender: FDA-Public Use
  Company Number: US-PFIZER INC-PV202200109359

PATIENT
  Age: 72 Year
  Sex: Female
  Weight: 89.8 kg

DRUGS (3)
  1. DOXORUBICIN HYDROCHLORIDE [Suspect]
     Active Substance: DOXORUBICIN HYDROCHLORIDE
     Indication: Leiomyosarcoma
     Dosage: 75 MG/M2, DAY 1 OF 21 DAY CYCLE
     Route: 042
     Dates: start: 20221115
  2. INVESTIGATIONAL PRODUCT [Suspect]
     Active Substance: INVESTIGATIONAL PRODUCT
     Indication: Leiomyosarcoma
     Dosage: 0.2 MG/KG, DAY 1 AND 8 OF 21 DAY CYCLE
     Route: 042
     Dates: start: 20221115, end: 20221115
  3. BACTRIM DS [Concomitant]
     Active Substance: SULFAMETHOXAZOLE\TRIMETHOPRIM
     Indication: Lymphopenia
     Dosage: [SULFAMETHOXAZOLE 800 MG]/ [TRIMETHOPRIM 160 MG], THREE TIMES WEEKLY-MWF
     Route: 048
     Dates: start: 20221115

REACTIONS (1)
  - Febrile neutropenia [Recovered/Resolved]

NARRATIVE: CASE EVENT DATE: 20221121
